FAERS Safety Report 10472973 (Version 2)
Quarter: 2015Q1

REPORT INFORMATION
  Report Type: Report from Study
  Country: BR (occurrence: BR)
  Receive Date: 20140924
  Receipt Date: 20150128
  Transmission Date: 20150720
  Serious: Yes (Hospitalization, Disabling, Other)
  Sender: FDA-Public Use
  Company Number: BR-ABBVIE-14K-020-1285241-00

PATIENT
  Sex: Female
  Weight: 93 kg

DRUGS (8)
  1. CANDESARTAN [Concomitant]
     Active Substance: CANDESARTAN
     Indication: HYPERTENSION
     Dosage: 1 OR 2 TABLETS DIALY
     Route: 048
     Dates: start: 2011
  2. METFORMIN [Suspect]
     Active Substance: METFORMIN HYDROCHLORIDE
     Indication: DIABETES MELLITUS
     Route: 048
     Dates: start: 2013
  3. ENALAPRIL [Concomitant]
     Active Substance: ENALAPRIL
     Indication: HYPERTENSION
     Dosage: 1 OR 2 TABLETS DIALY
     Route: 048
     Dates: start: 2009
  4. CANDESARTAN [Concomitant]
     Active Substance: CANDESARTAN
     Indication: BLOOD PRESSURE ABNORMAL
  5. FAMOTIDINE/CYCLOBENZAPRINE/CODEINE/PREDNISONE/ACECLOFENAC [Concomitant]
     Indication: RHEUMATOID ARTHRITIS
     Route: 048
     Dates: start: 1997
  6. GLIMEPIRIDE. [Concomitant]
     Active Substance: GLIMEPIRIDE
     Indication: DIABETES MELLITUS
     Route: 048
     Dates: start: 2013
  7. ACARBOSE. [Concomitant]
     Active Substance: ACARBOSE
     Indication: DIABETES MELLITUS
     Route: 048
     Dates: start: 20140910
  8. HUMIRA [Suspect]
     Active Substance: ADALIMUMAB
     Indication: RHEUMATOID ARTHRITIS
     Route: 058
     Dates: start: 2008

REACTIONS (19)
  - Pain in extremity [Unknown]
  - Urinary tract infection [Not Recovered/Not Resolved]
  - Liver disorder [Unknown]
  - Arthropathy [Unknown]
  - Malaise [Recovered/Resolved]
  - Musculoskeletal pain [Unknown]
  - Insomnia [Unknown]
  - Anxiety [Unknown]
  - Nervousness [Recovered/Resolved]
  - Diabetes mellitus [Recovering/Resolving]
  - Dysgeusia [Unknown]
  - Skull fracture [Recovering/Resolving]
  - Fear [Recovering/Resolving]
  - Blood pressure abnormal [Unknown]
  - Panic disorder [Recovering/Resolving]
  - Dengue fever [Recovered/Resolved]
  - Road traffic accident [Recovering/Resolving]
  - Rheumatoid arthritis [Recovering/Resolving]
  - Abdominal pain upper [Recovered/Resolved]

NARRATIVE: CASE EVENT DATE: 2009
